FAERS Safety Report 21447823 (Version 1)
Quarter: 2022Q4

REPORT INFORMATION
  Report Type: Spontaneous
  Country: FR (occurrence: FR)
  Receive Date: 20221012
  Receipt Date: 20221012
  Transmission Date: 20230113
  Serious: Yes (Hospitalization, Other)
  Sender: FDA-Public Use
  Company Number: FR-BAUSCH-BL-2022-023442

PATIENT
  Age: 71 Year
  Sex: Female
  Weight: 62.3 kg

DRUGS (5)
  1. METRONIDAZOLE [Suspect]
     Active Substance: METRONIDAZOLE
     Indication: Pneumonia aspiration
     Dosage: ROCPHINE RELAY, DOSAGES AND ROUTE OF ADMINISTRATION NOT SPECIFIED; UNKNOWN
     Route: 065
     Dates: start: 202112, end: 202112
  2. METRONIDAZOLE [Suspect]
     Active Substance: METRONIDAZOLE
     Indication: Lung disorder
     Dosage: DOSAGES AND ROUTE OF ADMINISTRATION NOT SPECIFIED; UNKNOWN
     Route: 065
     Dates: start: 20220106, end: 20220112
  3. CEFTRIAXONE SODIUM [Suspect]
     Active Substance: CEFTRIAXONE SODIUM
     Indication: Pneumonia aspiration
     Dosage: DOSAGE AND DURATION NOT SPECIFIED.
     Route: 042
     Dates: start: 202112, end: 202112
  4. CIPROFLOXACIN [Suspect]
     Active Substance: CIPROFLOXACIN
     Indication: Pneumonia aspiration
     Dosage: CIPROFLOXACIN SALT NOT ROCEPHINE RELAY, ROUTE OF PNEUMONIA ASPIRATION DEC-2021 / ?SPECIFIED (CIPROF
     Route: 065
     Dates: start: 202112, end: 202112
  5. CEFTRIAXONE [Suspect]
     Active Substance: CEFTRIAXONE
     Indication: Lung disorder
     Dosage: DOSAGE NOT SPECIFIED
     Route: 042
     Dates: start: 20220106, end: 20220113

REACTIONS (1)
  - Clostridium difficile infection [Recovered/Resolved]
